FAERS Safety Report 4510145-3 (Version None)
Quarter: 2004Q4

REPORT INFORMATION
  Report Type: 
  Country: None (occurrence: None)
  Receive Date: 20041124
  Receipt Date: 20041119
  Transmission Date: 20050328
  Serious: Yes (Hospitalization)
  Sender: FDA-Public Use
  Company Number: JP-BRISTOL-MYERS SQUIBB COMPANY-12771705

PATIENT
  Age: 56 Year
  Sex: Female

DRUGS (2)
  1. TAXOL [Suspect]
     Indication: OVARIAN CANCER
     Dosage: START DATE:  21-SEP-2004
     Route: 042
     Dates: start: 20041023, end: 20041023
  2. PARAPLATIN [Suspect]
     Indication: OVARIAN CANCER
     Dosage: START DATE:  21-SEP-2004
     Route: 042
     Dates: start: 20041023, end: 20041023

REACTIONS (1)
  - OEDEMA [None]
